FAERS Safety Report 15763269 (Version 7)
Quarter: 2019Q3

REPORT INFORMATION
  Report Type: Report from Study
  Country: US (occurrence: US)
  Receive Date: 20181227
  Receipt Date: 20190822
  Transmission Date: 20191004
  Serious: Yes (Hospitalization)
  Sender: FDA-Public Use
  Company Number: US-ACTELION-A-US2018-179219

PATIENT
  Age: 72 Year
  Sex: Female

DRUGS (2)
  1. MERREM [Concomitant]
     Active Substance: MEROPENEM
  2. OPSUMIT [Suspect]
     Active Substance: MACITENTAN
     Indication: PULMONARY ARTERIAL HYPERTENSION
     Dosage: 10 MG, QD
     Route: 048
     Dates: start: 20180726

REACTIONS (11)
  - Nail operation [Unknown]
  - Urinary tract infection [Unknown]
  - Nail infection [Unknown]
  - Wound [Unknown]
  - Debridement [Recovered/Resolved]
  - Skin ulcer [Not Recovered/Not Resolved]
  - Toe amputation [Recovered/Resolved]
  - Hospitalisation [Unknown]
  - Dialysis [Recovered/Resolved with Sequelae]
  - Dysphagia [Unknown]
  - Pneumonia [Unknown]

NARRATIVE: CASE EVENT DATE: 20181030
